FAERS Safety Report 22541661 (Version 1)
Quarter: 2023Q2

REPORT INFORMATION
  Report Type: Spontaneous
  Country: US (occurrence: None)
  Receive Date: 20230608
  Receipt Date: 20230608
  Transmission Date: 20230722
  Serious: Yes (Hospitalization)
  Sender: FDA-Public Use
  Company Number: None

PATIENT
  Age: 58 Year
  Sex: Female

DRUGS (2)
  1. OPSUMIT [Suspect]
     Active Substance: MACITENTAN
     Indication: Pulmonary arterial hypertension
     Dosage: FREQUENCY : DAILY;?
     Route: 048
     Dates: start: 202211
  2. ORENITRAM [Suspect]
     Active Substance: TREPROSTINIL

REACTIONS (3)
  - Respiration abnormal [None]
  - Anaemia [None]
  - Dyspnoea exertional [None]

NARRATIVE: CASE EVENT DATE: 20230605
